FAERS Safety Report 12869207 (Version 1)
Quarter: 2016Q4

REPORT INFORMATION
  Report Type: Report from Study
  Country: GB (occurrence: GB)
  Receive Date: 20161021
  Receipt Date: 20161021
  Transmission Date: 20170207
  Serious: Yes (Other)
  Sender: FDA-Public Use
  Company Number: GB-VIIV HEALTHCARE LIMITED-GB2016GSK150368

PATIENT

DRUGS (1)
  1. ZIDOVUDINE. [Suspect]
     Active Substance: ZIDOVUDINE
     Indication: HIV INFECTION

REACTIONS (10)
  - Neuropathy peripheral [Unknown]
  - Psychiatric symptom [Unknown]
  - Fanconi syndrome [Unknown]
  - Hyperthyroidism [Unknown]
  - Diabetes mellitus inadequate control [Unknown]
  - Mental impairment [Unknown]
  - Ill-defined disorder [Unknown]
  - Eating disorder [Unknown]
  - Malaise [Unknown]
  - Adverse drug reaction [Unknown]
